FAERS Safety Report 10732919 (Version 2)
Quarter: 2015Q1

REPORT INFORMATION
  Report Type: Spontaneous
  Country: JP (occurrence: JP)
  Receive Date: 20150123
  Receipt Date: 20150128
  Transmission Date: 20150721
  Serious: Yes (Other)
  Sender: FDA-Public Use
  Company Number: JP-009507513-1501JPN008161

PATIENT
  Age: 46 Year
  Sex: Female

DRUGS (1)
  1. TIENAM FOR INTRAVENOUS DRIP INFUSION [Suspect]
     Active Substance: CILASTATIN SODIUM\IMIPENEM
     Indication: INFLAMMATION
     Dosage: DAILY DOSAGE UNKNOWN
     Route: 042

REACTIONS (2)
  - Caesarean section [Unknown]
  - Exposure during pregnancy [Recovered/Resolved]
